FAERS Safety Report 14733725 (Version 5)
Quarter: 2019Q2

REPORT INFORMATION
  Report Type: Spontaneous
  Country: US (occurrence: US)
  Receive Date: 20180409
  Receipt Date: 20190424
  Transmission Date: 20190711
  Serious: Yes (Other)
  Sender: FDA-Public Use
  Company Number: US-GLAXOSMITHKLINE-US2018GSK058286

PATIENT
  Sex: Male

DRUGS (4)
  1. OMEPRAZOLE. [Suspect]
     Active Substance: OMEPRAZOLE
     Indication: GASTROOESOPHAGEAL REFLUX DISEASE
     Dosage: 20 MG, QD
     Route: 048
  2. ESOMEPRAZOLE. [Suspect]
     Active Substance: ESOMEPRAZOLE MAGNESIUM
     Indication: GASTROOESOPHAGEAL REFLUX DISEASE
     Dosage: 40 MG, QD
     Route: 065
  3. PREVACID [Suspect]
     Active Substance: LANSOPRAZOLE
     Indication: PRODUCT USED FOR UNKNOWN INDICATION
     Dosage: UNK
     Route: 065
  4. PREVACID [Suspect]
     Active Substance: LANSOPRAZOLE
     Indication: PRODUCT USED FOR UNKNOWN INDICATION
     Dosage: UNK
     Route: 065

REACTIONS (20)
  - Renal atrophy [Unknown]
  - Renal failure [Unknown]
  - Renal disorder [Unknown]
  - End stage renal disease [Unknown]
  - Dysuria [Unknown]
  - Renal injury [Unknown]
  - Pollakiuria [Unknown]
  - Renal cyst [Unknown]
  - Proteinuria [Unknown]
  - Nocturia [Unknown]
  - Calculus urinary [Unknown]
  - Dialysis [Unknown]
  - Acute kidney injury [Unknown]
  - Nephrolithiasis [Unknown]
  - Hydronephrosis [Unknown]
  - Nephropathy [Unknown]
  - Chronic kidney disease [Unknown]
  - Nephrocalcinosis [Unknown]
  - Blood urine present [Unknown]
  - Ureterolithiasis [Unknown]
